FAERS Safety Report 6753037-1 (Version None)
Quarter: 2010Q2

REPORT INFORMATION
  Report Type: 
  Country: None (occurrence: None)
  Receive Date: 20100603
  Receipt Date: 20100521
  Transmission Date: 20101027
  Serious: Yes (Other)
  Sender: FDA-Public Use
  Company Number: US-ELI_LILLY_AND_COMPANY-US201002001151

PATIENT
  Sex: Female

DRUGS (1)
  1. BYETTA [Suspect]
     Indication: TYPE 2 DIABETES MELLITUS
     Dosage: 5 UG, 2/D
     Route: 058
     Dates: end: 20051019

REACTIONS (8)
  - ABDOMINAL PAIN UPPER [None]
  - GALLBLADDER PAIN [None]
  - HYPERGLYCAEMIA [None]
  - METASTASES TO LIVER [None]
  - PANCREATIC DUCT STENOSIS [None]
  - PANCREATIC MASS [None]
  - PANCREATITIS [None]
  - RENAL CANCER RECURRENT [None]
